FAERS Safety Report 7298334-9 (Version None)
Quarter: 2011Q1

REPORT INFORMATION
  Report Type: 
  Country: None (occurrence: None)
  Receive Date: 20110217
  Receipt Date: 20100401
  Transmission Date: 20110831
  Serious: Yes (Other)
  Sender: FDA-Public Use
  Company Number: US-PFIZER INC-2009312611

PATIENT
  Sex: Female

DRUGS (1)
  1. XALATAN [Suspect]
     Indication: OCULAR HYPERTENSION
     Dosage: ONE DROP IN BOTH EYES ONCE A DAY AT BEDTIME
     Route: 047
     Dates: start: 20060418, end: 20091002

REACTIONS (1)
  - CYSTOID MACULAR OEDEMA [None]
